FAERS Safety Report 19971704 (Version 1)
Quarter: 2021Q4

REPORT INFORMATION
  Report Type: Spontaneous
  Country: KR (occurrence: KR)
  Receive Date: 20211019
  Receipt Date: 20211019
  Transmission Date: 20220303
  Serious: Yes (Other)
  Sender: FDA-Public Use
  Company Number: KR-GLAXOSMITHKLINE-KR2021GSK213255

PATIENT
  Age: 32 Year
  Sex: Male

DRUGS (1)
  1. ACYCLOVIR [Suspect]
     Active Substance: ACYCLOVIR
     Indication: Meningitis viral
     Dosage: UNK

REACTIONS (4)
  - Condition aggravated [Unknown]
  - Somnolence [Unknown]
  - Confusional state [Unknown]
  - Urinary retention [Unknown]
